FAERS Safety Report 20769081 (Version 1)
Quarter: 2022Q2

REPORT INFORMATION
  Report Type: Spontaneous
  Country: CN (occurrence: CN)
  Receive Date: 20220429
  Receipt Date: 20220429
  Transmission Date: 20220721
  Serious: Yes (Other)
  Sender: FDA-Public Use
  Company Number: CN-BAXTER-2022BAX009438

PATIENT
  Age: 33 Year
  Sex: Female
  Weight: 62 kg

DRUGS (4)
  1. CYCLOPHOSPHAMIDE [Suspect]
     Active Substance: CYCLOPHOSPHAMIDE
     Indication: Breast cancer female
     Dosage: FIRST CYCLE OF CHEMOTHERAPY- CYCLOPHOSPHAMIDE (900 MG) + 0.9% SODIUM CHLORIDE (250 ML)
     Route: 041
     Dates: start: 20220302, end: 20220302
  2. SODIUM CHLORIDE [Suspect]
     Active Substance: SODIUM CHLORIDE
     Indication: Medication dilution
     Dosage: FIRST CYCLE OF CHEMOTHERAPY- CYCLOPHOSPHAMIDE (900 MG) + 0.9% SODIUM CHLORIDE (250 ML)
     Route: 041
     Dates: start: 20220302, end: 20220302
  3. SODIUM CHLORIDE [Suspect]
     Active Substance: SODIUM CHLORIDE
     Dosage: FIRST CYCLE OF CHEMOTHERAPY- EPIRUBICIN HYDROCHLORIDE (150 MG) + 0.9% SODIUM CHLORIDE (100 ML)
     Route: 041
     Dates: start: 20220302, end: 20220302
  4. EPIRUBICIN HYDROCHLORIDE [Suspect]
     Active Substance: EPIRUBICIN HYDROCHLORIDE
     Indication: Breast cancer female
     Dosage: FIRST CYCLE OF CHEMOTHERAPY- EPIRUBICIN HYDROCHLORIDE (150 MG) + 0.9% SODIUM CHLORIDE (100 ML)
     Route: 041
     Dates: start: 20220302, end: 20220302

REACTIONS (2)
  - Nausea [Recovering/Resolving]
  - Vomiting [Recovering/Resolving]

NARRATIVE: CASE EVENT DATE: 20220302
